FAERS Safety Report 4718496-4 (Version None)
Quarter: 2005Q3

REPORT INFORMATION
  Report Type: 
  Country: None (occurrence: None)
  Receive Date: 20050720
  Receipt Date: 20050718
  Transmission Date: 20060218
  Serious: Yes (Disabling)
  Sender: FDA-Public Use
  Company Number: PHFR2005GB02491

PATIENT
  Age: 69 Year
  Sex: Female
  Weight: 53 kg

DRUGS (4)
  1. ZOMETA [Suspect]
     Indication: BREAST CANCER METASTATIC
     Dosage: 4 MG, QMO
     Route: 042
     Dates: start: 20040104, end: 20050330
  2. DICLOFENAC SODIUM [Concomitant]
     Indication: TOOTHACHE
     Dosage: 50 MG, TID
     Route: 048
  3. CAPECITABINE [Concomitant]
     Indication: BREAST CANCER METASTATIC
     Route: 065
     Dates: end: 20050301
  4. PACLITAXEL [Concomitant]
     Indication: BREAST CANCER METASTATIC
     Dosage: 90 MG/M2, QW
     Route: 042
     Dates: start: 20040901, end: 20041201

REACTIONS (1)
  - ASEPTIC NECROSIS BONE [None]
